FAERS Safety Report 19412288 (Version 7)
Quarter: 2022Q4

REPORT INFORMATION
  Report Type: Report from Study
  Country: IE (occurrence: IE)
  Receive Date: 20210614
  Receipt Date: 20221209
  Transmission Date: 20230112
  Serious: Yes (Hospitalization, Other)
  Sender: FDA-Public Use
  Company Number: NVSC2021IE029531

PATIENT
  Age: 84 Year
  Sex: Female

DRUGS (1)
  1. VOTRIENT [Suspect]
     Active Substance: PAZOPANIB HYDROCHLORIDE
     Indication: Metastatic renal cell carcinoma
     Dosage: 800 MG
     Route: 065
     Dates: start: 20210106

REACTIONS (20)
  - Constipation [Unknown]
  - Diarrhoea [Not Recovered/Not Resolved]
  - Oral discomfort [Unknown]
  - Skin ulcer [Unknown]
  - Back pain [Unknown]
  - Urinary tract infection [Unknown]
  - Neuropathy peripheral [Unknown]
  - Hypoaesthesia [Unknown]
  - Sciatica [Unknown]
  - Gingival pain [Unknown]
  - Pain [Unknown]
  - Gout [Unknown]
  - Weight decreased [Unknown]
  - Fatigue [Not Recovered/Not Resolved]
  - Toothache [Unknown]
  - Groin pain [Unknown]
  - Condition aggravated [Unknown]
  - Urine flow decreased [Not Recovered/Not Resolved]
  - Pain in extremity [Not Recovered/Not Resolved]
  - Arthralgia [Unknown]
